FAERS Safety Report 4547195-7 (Version None)
Quarter: 2005Q1

REPORT INFORMATION
  Report Type: 
  Country: None (occurrence: None)
  Receive Date: 20050107
  Receipt Date: 20050101
  Transmission Date: 20050727
  Serious: Yes (Other)
  Sender: FDA-Public Use
  Company Number: PHEH2005US00444

PATIENT

DRUGS (3)
  1. INDAPAMIDE [Concomitant]
  2. ZELNORM [Suspect]
     Dosage: UNK, UNK
     Route: 048
  3. ZELNORM [Suspect]
     Dosage: 1/4 TABLET QHS
     Route: 048

REACTIONS (3)
  - DISTURBANCE IN ATTENTION [None]
  - JUDGEMENT IMPAIRED [None]
  - ROAD TRAFFIC ACCIDENT [None]
